FAERS Safety Report 5831815-0 (Version None)
Quarter: 2008Q3

REPORT INFORMATION
  Report Type: 
  Country: None (occurrence: None)
  Receive Date: 20080804
  Receipt Date: 20080722
  Transmission Date: 20090109
  Serious: Yes (Other)
  Sender: FDA-Public Use
  Company Number: US-ELI_LILLY_AND_COMPANY-US200807004456

PATIENT
  Age: 54 Year
  Sex: Female

DRUGS (10)
  1. ZYPREXA [Suspect]
     Indication: BIPOLAR DISORDER
     Dosage: 10 MG, UNK
     Dates: start: 20080719
  2. ZYPREXA [Suspect]
     Dosage: 5 MG, UNK
  3. PERCOCET [Concomitant]
     Indication: RHEUMATOID ARTHRITIS
  4. CLONAZEPAM [Concomitant]
  5. LEXAPRO [Concomitant]
  6. ARIPIPRAZOLE [Concomitant]
  7. DEPAKOTE [Concomitant]
  8. ATIVAN [Concomitant]
  9. SEROQUEL [Concomitant]
  10. FLUOXETINE [Concomitant]
     Dosage: 20 MG, UNK

REACTIONS (10)
  - ANXIETY [None]
  - DYSGEUSIA [None]
  - FEELING ABNORMAL [None]
  - GENITAL HAEMORRHAGE [None]
  - MANIA [None]
  - NIGHTMARE [None]
  - SLEEP DISORDER [None]
  - SOMNOLENCE [None]
  - VAGINAL HAEMORRHAGE [None]
  - WITHDRAWAL SYNDROME [None]
